FAERS Safety Report 7301765-1 (Version None)
Quarter: 2011Q1

REPORT INFORMATION
  Report Type: 
  Country: None (occurrence: None)
  Receive Date: 20110218
  Receipt Date: 20110210
  Transmission Date: 20110831
  Serious: Yes (Hospitalization)
  Sender: FDA-Public Use
  Company Number: A0911544A

PATIENT
  Sex: Female
  Weight: 58 kg

DRUGS (4)
  1. VENLAFAXINE [Concomitant]
     Indication: DEPRESSION
     Dosage: 105MG PER DAY
     Route: 048
     Dates: start: 20050101
  2. LAPATINIB [Suspect]
     Indication: BREAST CANCER
     Dosage: 1250MG PER DAY
     Route: 048
     Dates: start: 20101222
  3. CAPECITABINE [Suspect]
     Indication: BREAST CANCER
     Dosage: 3000MGM2 TWICE PER DAY
     Route: 048
     Dates: start: 20101222
  4. LEVOTHYROXINE SODIUM [Concomitant]
     Indication: HYPOTHYROIDISM
     Dosage: 50MCG PER DAY
     Dates: start: 20000101

REACTIONS (3)
  - DIARRHOEA [None]
  - VOMITING [None]
  - ABDOMINAL PAIN [None]
